FAERS Safety Report 19090801 (Version 1)
Quarter: 2021Q2

REPORT INFORMATION
  Report Type: Other
  Country: GB (occurrence: GB)
  Receive Date: 20210405
  Receipt Date: 20210405
  Transmission Date: 20210717
  Serious: Yes (Other)
  Sender: FDA-Public Use
  Company Number: GB-ROCHE-2744799

PATIENT
  Sex: Male

DRUGS (1)
  1. ESBRIET [Suspect]
     Active Substance: PIRFENIDONE
     Indication: IDIOPATHIC PULMONARY FIBROSIS
     Dosage: 3 TABLETS TO BE TAKEN 3 TIMES A DAY?SUBSEQUENTLY RECEIVED DOSE ON 12/NOV/2020
     Route: 048
     Dates: start: 202010

REACTIONS (4)
  - Lower respiratory tract infection [Unknown]
  - Abdominal pain upper [Unknown]
  - Dyspnoea [Unknown]
  - Malaise [Unknown]
